FAERS Safety Report 15315155 (Version 1)
Quarter: 2018Q3

REPORT INFORMATION
  Report Type: Spontaneous
  Country: PR (occurrence: PR)
  Receive Date: 20180815
  Receipt Date: 20180815
  Transmission Date: 20181010
  Serious: No
  Sender: FDA-Public Use
  Company Number: None

PATIENT
  Age: 81 Year
  Sex: Female
  Weight: 76.5 kg

DRUGS (1)
  1. LEVAQUIN [Suspect]
     Active Substance: LEVOFLOXACIN
     Indication: ULCER
     Route: 042
     Dates: start: 20180405, end: 20180405

REACTIONS (4)
  - Hyperhidrosis [None]
  - Pruritus [None]
  - Asthenia [None]
  - Refusal of treatment by patient [None]

NARRATIVE: CASE EVENT DATE: 20180406
